FAERS Safety Report 11059925 (Version 2)
Quarter: 2015Q2

REPORT INFORMATION
  Report Type: Spontaneous
  Country: US (occurrence: US)
  Receive Date: 20150423
  Receipt Date: 20150428
  Transmission Date: 20150821
  Serious: Yes (Other)
  Sender: FDA-Public Use
  Company Number: US-RB-076359-15

PATIENT
  Age: 83 Year
  Sex: Female

DRUGS (1)
  1. DELSYM COUGH PLUS CHEST CONGESTION DM [Suspect]
     Active Substance: DEXTROMETHORPHAN HYDROBROMIDE\GUAIFENESIN
     Indication: BRONCHITIS
     Dosage: INGESTED 3 20ML DOSES 3 HOURS APART WITH THE LAST DOSE ABOUT 6 HOURS AGO
     Route: 065
     Dates: start: 20150409

REACTIONS (7)
  - Product use issue [Unknown]
  - Oral discharge [Unknown]
  - Erythema [Unknown]
  - Choking [Unknown]
  - Rhinorrhoea [Unknown]
  - Incorrect drug administration duration [Unknown]
  - Retching [Unknown]

NARRATIVE: CASE EVENT DATE: 20150409
